FAERS Safety Report 6879308-6 (Version None)
Quarter: 2010Q3

REPORT INFORMATION
  Report Type: 
  Country: None (occurrence: None)
  Receive Date: 20100728
  Receipt Date: 20100714
  Transmission Date: 20110219
  Serious: Yes (Other)
  Sender: FDA-Public Use
  Company Number: AU-SANOFI-AVENTIS-2010SA033226

PATIENT
  Age: 66 Year
  Sex: Female

DRUGS (5)
  1. ARAVA [Suspect]
     Route: 048
     Dates: start: 20100401
  2. METFORMIN HCL [Concomitant]
  3. LEVOTHYROXINE SODIUM [Concomitant]
  4. MICARDIS [Concomitant]
  5. SIMVASTATIN [Concomitant]

REACTIONS (3)
  - BLOOD PRESSURE INCREASED [None]
  - HEADACHE [None]
  - LIVER FUNCTION TEST ABNORMAL [None]
